FAERS Safety Report 10099930 (Version 1)
Quarter: 2014Q2

REPORT INFORMATION
  Report Type: Report from Study
  Country: MY (occurrence: MY)
  Receive Date: 20140423
  Receipt Date: 20140423
  Transmission Date: 20141212
  Serious: Yes (Death, Hospitalization, Other)
  Sender: FDA-Public Use
  Company Number: MY-BAYER-2014-055146

PATIENT
  Age: 92 Year
  Sex: Male

DRUGS (3)
  1. ACETYLSALICYLIC ACID (} 100 MG) [Suspect]
  2. WARFARIN [Interacting]
  3. PANTOPRAZOLE [Concomitant]
     Indication: DUODENAL ULCER

REACTIONS (4)
  - Duodenal ulcer haemorrhage [Fatal]
  - Melaena [Fatal]
  - Anaemia [None]
  - Labelled drug-drug interaction medication error [None]
